FAERS Safety Report 9735540 (Version 1)
Quarter: 2013Q4

REPORT INFORMATION
  Report Type: Spontaneous
  Country: US (occurrence: US)
  Receive Date: 20131206
  Receipt Date: 20131206
  Transmission Date: 20140711
  Serious: No
  Sender: FDA-Public Use
  Company Number: US-GILEAD-2009-0023648

PATIENT
  Sex: Female
  Weight: 66.68 kg

DRUGS (9)
  1. LETAIRIS [Suspect]
     Indication: PULMONARY ARTERIAL HYPERTENSION
     Route: 048
     Dates: start: 20090115, end: 20090806
  2. ATENOLOL [Concomitant]
  3. COZAAR [Concomitant]
  4. DYAZIDE [Concomitant]
  5. SYNTHROID [Concomitant]
  6. METFORMIN [Concomitant]
  7. ADVAIR [Concomitant]
  8. CITRACAL [Concomitant]
  9. OXYGEN [Concomitant]

REACTIONS (4)
  - Arthralgia [Unknown]
  - Headache [Unknown]
  - Fluid retention [Unknown]
  - Dyspnoea [Unknown]
